FAERS Safety Report 16536577 (Version 1)
Quarter: 2019Q3

REPORT INFORMATION
  Report Type: Spontaneous
  Country: US (occurrence: US)
  Receive Date: 20190706
  Receipt Date: 20190706
  Transmission Date: 20191004
  Serious: Yes (Other)
  Sender: FDA-Public Use
  Company Number: US-MACLEODS PHARMACEUTICALS US LTD-MAC2019021955

PATIENT

DRUGS (3)
  1. PRAMIPEXOLE. [Suspect]
     Active Substance: PRAMIPEXOLE
     Indication: PARKINSON^S DISEASE
     Dosage: 0.75 MILLIGRAM, QD
     Route: 065
  2. PRAMIPEXOLE. [Suspect]
     Active Substance: PRAMIPEXOLE
     Dosage: 1.5 MILLIGRAM, TID
     Route: 065
  3. PRAMIPEXOLE. [Suspect]
     Active Substance: PRAMIPEXOLE
     Dosage: 1.5 MILLIGRAM, BID
     Route: 065

REACTIONS (17)
  - Decreased appetite [Recovering/Resolving]
  - Nausea [Recovering/Resolving]
  - Depressive symptom [Recovering/Resolving]
  - Orthostatic hypotension [Recovering/Resolving]
  - Hyperventilation [Recovering/Resolving]
  - Panic attack [Recovering/Resolving]
  - Social avoidant behaviour [Recovering/Resolving]
  - Anxiety [Recovering/Resolving]
  - Dysphoria [Recovering/Resolving]
  - Weight decreased [Recovering/Resolving]
  - Dizziness [Recovering/Resolving]
  - Impulse-control disorder [Recovered/Resolved]
  - Crying [Recovering/Resolving]
  - Vomiting [Recovering/Resolving]
  - Frustration tolerance decreased [Recovering/Resolving]
  - Drug withdrawal syndrome [Recovering/Resolving]
  - Fatigue [Recovering/Resolving]
